FAERS Safety Report 4459851-X (Version None)
Quarter: 2004Q3

REPORT INFORMATION
  Report Type: 
  Country: None (occurrence: None)
  Receive Date: 20040928
  Receipt Date: 20040622
  Transmission Date: 20050211
  Serious: No
  Sender: FDA-Public Use
  Company Number: US-BRISTOL-MYERS SQUIBB COMPANY-12622684

PATIENT
  Age: 9 Month
  Sex: Male

DRUGS (2)
  1. TRIMOX [Suspect]
     Indication: EAR INFECTION
     Dosage: 250 MG/5ML IN 3/4 TEASPOONFUL - TOOK 2 DOSES ON 18-JUN-2004
     Route: 048
     Dates: start: 20040618
  2. NONE [Concomitant]

REACTIONS (4)
  - AGITATION [None]
  - INSOMNIA [None]
  - RASH [None]
  - URTICARIA [None]
